FAERS Safety Report 25534156 (Version 1)
Quarter: 2025Q3

REPORT INFORMATION
  Report Type: Spontaneous
  Country: US (occurrence: US)
  Receive Date: 20250709
  Receipt Date: 20250709
  Transmission Date: 20251021
  Serious: Yes (Other)
  Sender: AUROBINDO
  Company Number: US-AUROBINDO-AUR-APL-2023-001273

PATIENT
  Age: 66 Year
  Sex: Female

DRUGS (9)
  1. CLINDAMYCIN [Suspect]
     Active Substance: CLINDAMYCIN
     Indication: Necrobiosis lipoidica diabeticorum
     Route: 065
  2. CLINDAMYCIN [Suspect]
     Active Substance: CLINDAMYCIN
     Indication: Wound complication
  3. CLOBETASOL PROPIONATE [Suspect]
     Active Substance: CLOBETASOL PROPIONATE
     Indication: Necrobiosis lipoidica diabeticorum
     Dosage: 0.5 PERCENT, TWO TIMES A DAY
     Route: 065
  4. CLOBETASOL PROPIONATE [Suspect]
     Active Substance: CLOBETASOL PROPIONATE
     Indication: Wound complication
  5. LIDOCAINE [Suspect]
     Active Substance: LIDOCAINE
     Indication: Necrobiosis lipoidica diabeticorum
     Route: 061
  6. LIDOCAINE [Suspect]
     Active Substance: LIDOCAINE
     Indication: Wound complication
  7. DOXYCYCLINE [Suspect]
     Active Substance: DOXYCYCLINE
     Indication: Necrobiosis lipoidica diabeticorum
     Dosage: 100 MILLIGRAM, TWO TIMES A DAY
     Route: 065
  8. DOXYCYCLINE [Suspect]
     Active Substance: DOXYCYCLINE
     Indication: Wound complication
  9. CALCIUM ALGINATE [Concomitant]
     Active Substance: CALCIUM ALGINATE
     Indication: Necrobiosis lipoidica diabeticorum
     Route: 065

REACTIONS (1)
  - Drug ineffective [Unknown]
